FAERS Safety Report 6034752-4 (Version None)
Quarter: 2009Q1

REPORT INFORMATION
  Report Type: 
  Country: None (occurrence: None)
  Receive Date: 20090109
  Receipt Date: 20090109
  Transmission Date: 20090719
  Serious: Yes (Hospitalization)
  Sender: FDA-Public Use
  Company Number: None

PATIENT
  Sex: Male
  Weight: 63 kg

DRUGS (3)
  1. VYVANSE [Suspect]
     Indication: ATTENTION DEFICIT/HYPERACTIVITY DISORDER
     Dosage: 70 MG QAM PO
     Route: 048
     Dates: start: 20080915, end: 20081118
  2. ABILIFY [Suspect]
     Indication: ABNORMAL BEHAVIOUR
     Dosage: 15 MG QHS PO
     Route: 048
     Dates: start: 20080915, end: 20081118
  3. ABILIFY [Suspect]
     Indication: ATTENTION DEFICIT/HYPERACTIVITY DISORDER
     Dosage: 15 MG QHS PO
     Route: 048
     Dates: start: 20080915, end: 20081118

REACTIONS (5)
  - DEHYDRATION [None]
  - DIZZINESS [None]
  - FALL [None]
  - HEAD INJURY [None]
  - SYNCOPE [None]
